FAERS Safety Report 6074655-2 (Version None)
Quarter: 2009Q1

REPORT INFORMATION
  Report Type: 
  Country: None (occurrence: None)
  Receive Date: 20090209
  Receipt Date: 20090205
  Transmission Date: 20090719
  Serious: Yes (Death)
  Sender: FDA-Public Use
  Company Number: 2009SP000383

PATIENT
  Age: 23 Year

DRUGS (7)
  1. LUNESTA [Suspect]
     Dosage: ORAL
     Route: 048
     Dates: start: 20050101, end: 20050101
  2. ATOMOXETINE HCL [Suspect]
     Dosage: ORAL
     Route: 048
     Dates: end: 20050101
  3. ACETAMINOPHEN [Suspect]
     Dosage: ORAL
     Route: 048
     Dates: end: 20050101
  4. ASPIRIN [Suspect]
     Dosage: ORAL
     Route: 048
     Dates: end: 20050101
  5. CAFFEINE [Suspect]
     Dosage: ORAL
     Route: 048
     Dates: end: 20050101
  6. CON MEDS [Concomitant]
  7. PREV MEDS [Concomitant]

REACTIONS (2)
  - COMPLETED SUICIDE [None]
  - INTENTIONAL DRUG MISUSE [None]
